FAERS Safety Report 15968864 (Version 1)
Quarter: 2019Q1

REPORT INFORMATION
  Report Type: Spontaneous
  Country: US (occurrence: US)
  Receive Date: 20190215
  Receipt Date: 20190215
  Transmission Date: 20190418
  Serious: Yes (Other)
  Sender: FDA-Public Use
  Company Number: US-OTSUKA-2018_010585

PATIENT

DRUGS (8)
  1. CYCLOPHOSPHAMIDE. [Suspect]
     Active Substance: CYCLOPHOSPHAMIDE
     Indication: CONGENITAL APLASTIC ANAEMIA
  2. BUSULFEX [Suspect]
     Active Substance: BUSULFAN
     Indication: CONGENITAL APLASTIC ANAEMIA
  3. RABBIT ATG [Suspect]
     Active Substance: LAPINE T-LYMPHOCYTE IMMUNE GLOBULIN
     Indication: BONE MARROW CONDITIONING REGIMEN
     Dosage: 2.5 MG/KG, QD  [X 4 DAYS (D-5 TO D-2)]
     Route: 065
  4. RABBIT ATG [Suspect]
     Active Substance: LAPINE T-LYMPHOCYTE IMMUNE GLOBULIN
     Indication: CONGENITAL APLASTIC ANAEMIA
  5. FLUDARABINE [Suspect]
     Active Substance: FLUDARABINE PHOSPHATE
     Indication: CONGENITAL APLASTIC ANAEMIA
  6. BUSULFEX [Suspect]
     Active Substance: BUSULFAN
     Indication: BONE MARROW CONDITIONING REGIMEN
     Dosage: 4 DF, (D-7 TO -6)
     Route: 065
  7. CYCLOPHOSPHAMIDE. [Suspect]
     Active Substance: CYCLOPHOSPHAMIDE
     Indication: BONE MARROW CONDITIONING REGIMEN
     Dosage: 10 MG/KG, QD [ X 4 DAYS (D-5 TO D-2)]
     Route: 065
  8. FLUDARABINE [Suspect]
     Active Substance: FLUDARABINE PHOSPHATE
     Indication: BONE MARROW CONDITIONING REGIMEN
     Dosage: 35 MG/M2, QD [ X 4 DAYS (D-5 TO D-2)]
     Route: 065

REACTIONS (1)
  - Venoocclusive liver disease [Unknown]
